FAERS Safety Report 5338168-5 (Version None)
Quarter: 2007Q2

REPORT INFORMATION
  Report Type: 
  Country: None (occurrence: None)
  Receive Date: 20070327
  Receipt Date: 20070220
  Transmission Date: 20071010
  Serious: Yes (Death)
  Sender: FDA-Public Use
  Company Number: 236143

PATIENT
  Age: 62 Year
  Sex: Male

DRUGS (13)
  1. AVASTIN [Suspect]
     Indication: NON-SMALL CELL LUNG CANCER
     Dosage: 15 MG/KG, INTRAVENOUS
     Route: 042
     Dates: start: 20061128
  2. DOCETAXEL (DOCETAXEL) [Concomitant]
  3. CARBOPLATIN [Concomitant]
  4. MS CONTIN [Concomitant]
  5. OXYCODONE HCL [Concomitant]
  6. NORVASC [Concomitant]
  7. LISINOPRIL [Concomitant]
  8. COLACE (DOCUSATE SODIUM) [Concomitant]
  9. MOTRIN [Concomitant]
  10. NEXIUM [Concomitant]
  11. ZOFRAN [Concomitant]
  12. ALLOPURINOL [Concomitant]
  13. NEULASTA [Concomitant]

REACTIONS (1)
  - HAEMOPTYSIS [None]
